FAERS Safety Report 6718171-0 (Version None)
Quarter: 2010Q2

REPORT INFORMATION
  Report Type: 
  Country: None (occurrence: None)
  Receive Date: 20100510
  Receipt Date: 20100429
  Transmission Date: 20101027
  Serious: Yes (Other)
  Sender: FDA-Public Use
  Company Number: US-JNJCH-2010010676

PATIENT
  Age: 52 Year
  Sex: Female
  Weight: 89.8 kg

DRUGS (2)
  1. VISINE L.R. [Suspect]
     Indication: EYE DISORDER
     Dosage: TEXT:1-2 DROPS EACH EYE ONE TIME DAILY
     Route: 047
  2. VITAMINS [Concomitant]
     Indication: VITAMIN SUPPLEMENTATION
     Dosage: TEXT:1X DAILY
     Route: 065

REACTIONS (3)
  - ANXIETY [None]
  - DEPENDENCE [None]
  - EXPIRED DRUG ADMINISTERED [None]
